FAERS Safety Report 5776443-0 (Version None)
Quarter: 2008Q2

REPORT INFORMATION
  Report Type: 
  Country: None (occurrence: None)
  Receive Date: 20080617
  Receipt Date: 20080617
  Transmission Date: 20081010
  Serious: Yes (Life-Threatening, Other)
  Sender: FDA-Public Use
  Company Number: None

PATIENT
  Age: 89 Year
  Sex: Female
  Weight: 57.1532 kg

DRUGS (1)
  1. DIGITEK 250MCG TABLETS [Suspect]
     Indication: CARDIAC DISORDER
     Dosage: ONE EVERY A.M.
     Dates: start: 20050819

REACTIONS (5)
  - DIZZINESS [None]
  - FALL [None]
  - PAIN [None]
  - PAIN IN EXTREMITY [None]
  - SCAR [None]
